FAERS Safety Report 7365685-9 (Version None)
Quarter: 2011Q1

REPORT INFORMATION
  Report Type: 
  Country: None (occurrence: None)
  Receive Date: 20110322
  Receipt Date: 20100922
  Transmission Date: 20110831
  Serious: Yes (Hospitalization)
  Sender: FDA-Public Use
  Company Number: US-BAYER-200940834NA

PATIENT
  Sex: Female
  Weight: 91 kg

DRUGS (9)
  1. PENICILLIN [Concomitant]
     Dates: start: 20040101
  2. RISPERDAL [Concomitant]
  3. LORAZEPAM [Concomitant]
     Dates: start: 20030101, end: 20090101
  4. COGENTIN [Concomitant]
  5. UNCODEABLE ^UNCLASSIFIABLE^ [Concomitant]
  6. ZOLOFT [Concomitant]
  7. CONSTAN [Concomitant]
  8. LIMIKTAL NOS (UNCODEABLE ^UNCLASSIFIABLE^) [Concomitant]
  9. YAZ [Suspect]
     Indication: PRODUCT USED FOR UNKNOWN INDICATION
     Route: 048
     Dates: start: 20070916, end: 20071128

REACTIONS (2)
  - CHEST PAIN [None]
  - PULMONARY EMBOLISM [None]
